FAERS Safety Report 4279377-6 (Version None)
Quarter: 2004Q1

REPORT INFORMATION
  Report Type: 
  Country: None (occurrence: None)
  Receive Date: 20040127
  Receipt Date: 20040115
  Transmission Date: 20041129
  Serious: Yes (Hospitalization)
  Sender: FDA-Public Use
  Company Number: WAES 0401USA01337

PATIENT
  Age: 10 Year
  Sex: Male

DRUGS (5)
  1. ALBUTEROL [Concomitant]
     Indication: ASTHMA
  2. VANCERIL [Concomitant]
     Indication: ASTHMA
  3. SINGULAIR [Suspect]
     Route: 048
     Dates: start: 20020101
  4. SINGULAIR [Suspect]
     Route: 048
     Dates: end: 20001201
  5. PREDNISONE [Concomitant]
     Indication: ASTHMA

REACTIONS (2)
  - ASTHMA [None]
  - HYPERSENSITIVITY [None]
